FAERS Safety Report 6985644-5 (Version None)
Quarter: 2010Q3

REPORT INFORMATION
  Report Type: 
  Country: None (occurrence: None)
  Receive Date: 20100915
  Receipt Date: 20100906
  Transmission Date: 20110219
  Serious: Yes (Hospitalization, Other)
  Sender: FDA-Public Use
  Company Number: GXKR2009DE12150

PATIENT
  Age: 14 Year
  Sex: Female

DRUGS (5)
  1. METHYLPREDNISOLONE 4MG TAB [Suspect]
     Indication: SYSTEMIC LUPUS ERYTHEMATOSUS
     Dosage: PULSES
     Route: 042
  2. METHYLPREDNISOLONE 4MG TAB [Suspect]
     Indication: NEPHRITIS
  3. PREDNISOLONE (NGX) [Suspect]
     Indication: SYSTEMIC LUPUS ERYTHEMATOSUS
     Dosage: 2 MG/KG TAPERED TO 0.2 MG/KG OVER 6 MONTHS
     Route: 048
  4. MYCOPHENOLATE MOFETIL [Concomitant]
  5. HYDROXYCHLOROQUINE [Concomitant]

REACTIONS (8)
  - BACK PAIN [None]
  - CUSHING'S SYNDROME [None]
  - EPIDURAL LIPOMATOSIS [None]
  - FAECAL INCONTINENCE [None]
  - LIPOHYPERTROPHY [None]
  - PARAESTHESIA [None]
  - VOMITING [None]
  - WEIGHT INCREASED [None]
